FAERS Safety Report 23909950 (Version 1)
Quarter: 2024Q2

REPORT INFORMATION
  Report Type: Report from Study
  Country: GB (occurrence: GB)
  Receive Date: 20240528
  Receipt Date: 20240528
  Transmission Date: 20240716
  Serious: Yes (Hospitalization, Other)
  Sender: FDA-Public Use
  Company Number: GB-SANDOZ-SDZ2023GB055091

PATIENT
  Sex: Male

DRUGS (1)
  1. HYRIMOZ [Suspect]
     Active Substance: ADALIMUMAB-ADAZ
     Indication: Crohn^s disease
     Dosage: 40 MG, QW,40MG/0.4ML
     Route: 058
     Dates: start: 20231115

REACTIONS (2)
  - Surgery [Unknown]
  - Sleep disorder [Not Recovered/Not Resolved]
